FAERS Safety Report 4918157-2 (Version None)
Quarter: 2006Q1

REPORT INFORMATION
  Report Type: 
  Country: None (occurrence: None)
  Receive Date: 20060215
  Receipt Date: 20060202
  Transmission Date: 20060701
  Serious: Yes (Life-Threatening, Hospitalization)
  Sender: FDA-Public Use
  Company Number: PH-2006-001900

PATIENT
  Age: 78 Year
  Sex: Male
  Weight: 78 kg

DRUGS (1)
  1. MAGNEVIST [Suspect]
     Indication: ARTERIOGRAM CAROTID
     Dosage: SEE IMAGE
     Route: 042
     Dates: start: 20060116, end: 20060116

REACTIONS (6)
  - BURNING SENSATION [None]
  - CARDIO-RESPIRATORY ARREST [None]
  - FOAMING AT MOUTH [None]
  - HYPERSENSITIVITY [None]
  - MUSCLE SPASMS [None]
  - VOMITING [None]
